FAERS Safety Report 25264208 (Version 1)
Quarter: 2025Q2

REPORT INFORMATION
  Report Type: Spontaneous
  Country: FR (occurrence: FR)
  Receive Date: 20250502
  Receipt Date: 20250502
  Transmission Date: 20250717
  Serious: Yes (Death, Hospitalization)
  Sender: AMGEN
  Company Number: FR-AMGEN-FRASP2025083203

PATIENT
  Age: 53 Year
  Sex: Female

DRUGS (13)
  1. TRASTUZUMAB [Suspect]
     Active Substance: TRASTUZUMAB
     Indication: Breast cancer metastatic
     Route: 065
     Dates: end: 201805
  2. TRASTUZUMAB [Suspect]
     Active Substance: TRASTUZUMAB
     Route: 065
     Dates: start: 202003
  3. TRASTUZUMAB [Suspect]
     Active Substance: TRASTUZUMAB
     Route: 065
     Dates: start: 202102
  4. TRASTUZUMAB [Suspect]
     Active Substance: TRASTUZUMAB
     Dosage: UNK, QWK
     Route: 065
  5. PERTUZUMAB [Suspect]
     Active Substance: PERTUZUMAB
     Route: 065
     Dates: end: 201805
  6. LETROZOLE [Concomitant]
     Active Substance: LETROZOLE
  7. CARBOPLATIN [Concomitant]
     Active Substance: CARBOPLATIN
  8. PACLITAXEL [Concomitant]
     Active Substance: PACLITAXEL
  9. PACLITAXEL [Concomitant]
     Active Substance: PACLITAXEL
     Dosage: UNK, QWK
  10. DOCETAXEL [Concomitant]
     Active Substance: DOCETAXEL
     Dates: start: 201805
  11. ADO-TRASTUZUMAB EMTANSINE [Concomitant]
     Active Substance: ADO-TRASTUZUMAB EMTANSINE
     Dates: start: 2018
  12. VINORELBINE [Concomitant]
     Active Substance: VINORELBINE TARTRATE
     Route: 048
     Dates: start: 202003
  13. GEMCITABINE [Concomitant]
     Active Substance: GEMCITABINE
     Dates: start: 202102

REACTIONS (4)
  - Breast cancer metastatic [Fatal]
  - Cardiac failure acute [Recovering/Resolving]
  - Thrombotic thrombocytopenic purpura [Unknown]
  - Off label use [Unknown]
